FAERS Safety Report 15073057 (Version 5)
Quarter: 2018Q4

REPORT INFORMATION
  Report Type: Spontaneous
  Country: US (occurrence: US)
  Receive Date: 20180627
  Receipt Date: 20181010
  Transmission Date: 20190204
  Serious: No
  Sender: FDA-Public Use
  Company Number: US-TEVA-2018-US-914125

PATIENT
  Age: 49 Year
  Sex: Female

DRUGS (2)
  1. DULOXETINE. [Suspect]
     Active Substance: DULOXETINE
     Dosage: EVERY 2-3 DAYS
     Route: 065
     Dates: start: 2009, end: 2018
  2. DULOXETINE. [Suspect]
     Active Substance: DULOXETINE
     Indication: DEPRESSION
     Dosage: 30 MILLIGRAM DAILY;
     Route: 065
     Dates: start: 2009, end: 2018

REACTIONS (12)
  - Dyspnoea [Unknown]
  - Weight decreased [Unknown]
  - Intentional dose omission [Unknown]
  - Chills [Unknown]
  - Breast tenderness [Unknown]
  - Withdrawal syndrome [Unknown]
  - Muscle tightness [Unknown]
  - Tremor [Not Recovered/Not Resolved]
  - Hormone level abnormal [Unknown]
  - Menstruation delayed [Unknown]
  - Hot flush [Unknown]
  - Drug ineffective [Unknown]

NARRATIVE: CASE EVENT DATE: 2009
